FAERS Safety Report 23336586 (Version 1)
Quarter: 2023Q4

REPORT INFORMATION
  Report Type: Spontaneous
  Country: FR (occurrence: FR)
  Receive Date: 20231226
  Receipt Date: 20231226
  Transmission Date: 20240110
  Serious: Yes (Other)
  Sender: FDA-Public Use
  Company Number: FR-AFSSAPS-LL2023002215

PATIENT
  Age: 73 Year
  Sex: Female

DRUGS (1)
  1. TENOFOVIR DISOPROXIL [Suspect]
     Active Substance: TENOFOVIR DISOPROXIL
     Indication: Hepatitis
     Dosage: 245 MILLIGRAM
     Route: 065
     Dates: start: 20221101

REACTIONS (1)
  - Hypertension [Not Recovered/Not Resolved]
